FAERS Safety Report 15432372 (Version 1)
Quarter: 2018Q3

REPORT INFORMATION
  Report Type: Spontaneous
  Country: US (occurrence: US)
  Receive Date: 20180926
  Receipt Date: 20180926
  Transmission Date: 20181010
  Serious: No
  Sender: FDA-Public Use
  Company Number: US-GLAXOSMITHKLINE-US2018GSK169700

PATIENT
  Sex: Female

DRUGS (3)
  1. SORIATANE [Suspect]
     Active Substance: ACITRETIN
     Indication: ECZEMA
  2. SORIATANE [Suspect]
     Active Substance: ACITRETIN
     Indication: PSORIASIS
     Dosage: 25 MG, UNK
     Dates: start: 201708
  3. SORIATANE [Suspect]
     Active Substance: ACITRETIN
     Indication: ALOPECIA

REACTIONS (5)
  - Nasal pruritus [Unknown]
  - Drug dose omission [Unknown]
  - Vulvovaginal pruritus [Unknown]
  - Pruritus [Unknown]
  - Eyelids pruritus [Unknown]
